FAERS Safety Report 10233852 (Version 2)
Quarter: 2014Q2

REPORT INFORMATION
  Report Type: Spontaneous
  Country: CA (occurrence: CA)
  Receive Date: 20140612
  Receipt Date: 20140612
  Transmission Date: 20141212
  Serious: Yes (Hospitalization)
  Sender: FDA-Public Use
  Company Number: CA-BAXTER-2014BAX028230

PATIENT
  Age: 77 Year
  Sex: Male

DRUGS (3)
  1. DIANEAL PD4 SOLUTION WITH 2.5% DEXTROSE AND 2.5 MEQ/L CALCIUM [Suspect]
     Indication: DIABETIC END STAGE RENAL DISEASE
     Dosage: ONE 5L BAG
     Route: 033
     Dates: start: 201401
  2. DIANEAL PD4 SOLUTION WITH 2.5% DEXTROSE AND 2.5 MEQ/L CALCIUM [Suspect]
     Dosage: TWO 3L BAGS
     Route: 033
     Dates: start: 201401
  3. EXTRANEAL [Suspect]
     Indication: DIABETIC END STAGE RENAL DISEASE
     Dosage: ONE 2.5L BAG
     Route: 033
     Dates: start: 201401

REACTIONS (3)
  - Urinary tract infection [Recovering/Resolving]
  - Delirium [Recovered/Resolved]
  - Dehydration [Recovered/Resolved]
